FAERS Safety Report 7912069-8 (Version None)
Quarter: 2011Q4

REPORT INFORMATION
  Report Type: 
  Country: None (occurrence: None)
  Receive Date: 20111114
  Receipt Date: 20111103
  Transmission Date: 20120403
  Serious: Yes (Hospitalization)
  Sender: FDA-Public Use
  Company Number: JP-JNJFOC-20110612987

PATIENT
  Age: 73 Year
  Sex: Female
  Weight: 49.81 kg

DRUGS (17)
  1. PROGRAF [Concomitant]
     Dates: start: 20100628, end: 20101024
  2. CELECOXIB [Concomitant]
  3. BREDININ [Concomitant]
     Dates: start: 20110126, end: 20110516
  4. TRIMETHOPRIM [Concomitant]
  5. ACTONEL [Concomitant]
  6. JANUVIA [Concomitant]
  7. REMICADE [Suspect]
     Indication: PRODUCT USED FOR UNKNOWN INDICATION
     Route: 042
     Dates: start: 20090201
  8. ETALATE INJ [Suspect]
     Route: 050
     Dates: start: 20100419, end: 20110116
  9. BAKTAR [Concomitant]
  10. RABEPRAZOLE SODIUM [Concomitant]
  11. BASEN [Concomitant]
  12. METFORMIN HCL [Concomitant]
  13. ETANERCEPT [Suspect]
     Route: 050
     Dates: start: 20071001
  14. SULFASALAZINE [Concomitant]
     Dates: start: 20101206, end: 20110125
  15. ETANERCEPT [Suspect]
     Indication: RHEUMATOID ARTHRITIS
     Route: 050
     Dates: start: 20110117, end: 20110425
  16. PREDNISOLONE [Concomitant]
     Dates: start: 20100419
  17. MUCOSTA [Concomitant]

REACTIONS (1)
  - PANCREATIC CARCINOMA [None]
